FAERS Safety Report 15866927 (Version 1)
Quarter: 2019Q1

REPORT INFORMATION
  Report Type: Spontaneous
  Country: US (occurrence: US)
  Receive Date: 20190102
  Receipt Date: 20190102
  Transmission Date: 20190417
  Serious: Yes (Hospitalization)
  Sender: FDA-Public Use
  Company Number: None

PATIENT
  Age: 50 Year
  Sex: Female
  Weight: 73.5 kg

DRUGS (1)
  1. DOXORUBICIN LIPOSOME [Suspect]
     Active Substance: DOXORUBICIN
     Indication: BREAST CANCER
     Dosage: ?          OTHER FREQUENCY:EVERY 21 DAYS;?
     Route: 042
     Dates: start: 20181226

REACTIONS (6)
  - Dyspnoea [None]
  - Chest pain [None]
  - Tachycardia [None]
  - Flushing [None]
  - Blood pressure increased [None]
  - Back pain [None]

NARRATIVE: CASE EVENT DATE: 20181226
